FAERS Safety Report 17672690 (Version 1)
Quarter: 2020Q2

REPORT INFORMATION
  Report Type: Spontaneous
  Country: US (occurrence: US)
  Receive Date: 20200415
  Receipt Date: 20200415
  Transmission Date: 20200713
  Serious: Yes (Death, Other)
  Sender: FDA-Public Use
  Company Number: US-ASTRAZENECA-2020SE50782

PATIENT
  Age: 44 Year
  Sex: Female

DRUGS (2)
  1. DURVALUMAB. [Suspect]
     Active Substance: DURVALUMAB
     Indication: LUNG SQUAMOUS CELL CARCINOMA STAGE III
     Dosage: DISCONTINUED DUE TO DEVELOPMENT OF AUTOIMMUNE DIABETES AND HYPOTHYROIDISM
     Route: 042
  2. DURVALUMAB. [Suspect]
     Active Substance: DURVALUMAB
     Indication: LUNG SQUAMOUS CELL CARCINOMA STAGE III
     Route: 042

REACTIONS (5)
  - Systemic lupus erythematosus [Fatal]
  - Right ventricular failure [Fatal]
  - Autoimmune hypothyroidism [Unknown]
  - Diabetes mellitus [Unknown]
  - Pulmonary arterial hypertension [Fatal]
